FAERS Safety Report 7636371-2 (Version None)
Quarter: 2011Q3

REPORT INFORMATION
  Report Type: 
  Country: None (occurrence: None)
  Receive Date: 20110726
  Receipt Date: 20110718
  Transmission Date: 20111222
  Serious: Yes (Life-Threatening, Hospitalization)
  Sender: FDA-Public Use
  Company Number: FR-GLAXOSMITHKLINE-B0733504A

PATIENT
  Sex: Female

DRUGS (4)
  1. ZOVIRAX [Suspect]
     Indication: HERPES ZOSTER
     Dosage: 1G TWICE PER DAY
     Route: 048
     Dates: start: 20110615, end: 20110621
  2. LYRICA [Suspect]
     Indication: HERPES ZOSTER
     Dosage: 75MG THREE TIMES PER DAY
     Route: 048
     Dates: start: 20110615, end: 20110621
  3. BACTRIM DS [Suspect]
     Indication: ANTIFUNGAL PROPHYLAXIS
     Dosage: 1TAB PER DAY
     Route: 048
     Dates: start: 20110201, end: 20110621
  4. CYCLOPHOSPHAMIDE [Concomitant]
     Route: 042
     Dates: start: 20110201

REACTIONS (2)
  - AGRANULOCYTOSIS [None]
  - URINARY TRACT INFECTION [None]
